FAERS Safety Report 9696656 (Version 1)
Quarter: 2013Q4

REPORT INFORMATION
  Report Type: Spontaneous
  Country: IT (occurrence: IT)
  Receive Date: 20131119
  Receipt Date: 20131119
  Transmission Date: 20140711
  Serious: Yes (Hospitalization)
  Sender: FDA-Public Use
  Company Number: IT-ABBVIE-13P-083-1170950-00

PATIENT
  Age: 40 Year
  Sex: Female

DRUGS (4)
  1. DEPAKIN [Suspect]
     Indication: PSYCHOPATHIC PERSONALITY
     Route: 048
     Dates: start: 20130101, end: 20131030
  2. PROZIN [Suspect]
     Indication: PSYCHOPATHIC PERSONALITY
     Route: 048
     Dates: start: 20130101, end: 20131030
  3. SEROQUEL [Suspect]
     Indication: PSYCHOPATHIC PERSONALITY
     Route: 048
     Dates: start: 20130101, end: 20131030
  4. FLUPHENAZINE HYDROCHLORIDE [Suspect]
     Indication: PSYCHOPATHIC PERSONALITY
     Route: 030
     Dates: start: 20130101, end: 20131030

REACTIONS (7)
  - Toxicity to various agents [Recovered/Resolved]
  - Mydriasis [Recovered/Resolved]
  - Sopor [Recovered/Resolved]
  - Slow response to stimuli [Recovered/Resolved]
  - Disorientation [Recovered/Resolved]
  - Nervous system disorder [Recovered/Resolved]
  - Accidental overdose [Unknown]
